FAERS Safety Report 5907115-7 (Version None)
Quarter: 2008Q4

REPORT INFORMATION
  Report Type: 
  Country: None (occurrence: None)
  Receive Date: 20081003
  Receipt Date: 20080925
  Transmission Date: 20090506
  Serious: Yes (Hospitalization)
  Sender: FDA-Public Use
  Company Number: US-ELI_LILLY_AND_COMPANY-US200808001977

PATIENT
  Sex: Female

DRUGS (1)
  1. HUMALOG [Suspect]
     Route: 058
     Dates: start: 20060801

REACTIONS (6)
  - BLOOD GLUCOSE INCREASED [None]
  - DIABETIC KETOACIDOSIS [None]
  - DRUG INEFFECTIVE [None]
  - HEADACHE [None]
  - HOSPITALISATION [None]
  - VOMITING [None]
